FAERS Safety Report 5293048-9 (Version None)
Quarter: 2007Q2

REPORT INFORMATION
  Report Type: 
  Country: None (occurrence: None)
  Receive Date: 20070411
  Receipt Date: 20070328
  Transmission Date: 20071010
  Serious: Yes (Hospitalization)
  Sender: FDA-Public Use
  Company Number: DEWYE228228MAR07

PATIENT
  Sex: Female

DRUGS (2)
  1. ENBREL [Suspect]
     Indication: DRUG USE FOR UNKNOWN INDICATION
     Dosage: 25 MG
     Route: 058
  2. ENBREL [Suspect]
     Dosage: LYOPHILIZED/UNKNOWN
     Route: 058
     Dates: start: 20020101

REACTIONS (1)
  - HYPERSENSITIVITY [None]
